FAERS Safety Report 12536848 (Version 1)
Quarter: 2016Q3

REPORT INFORMATION
  Report Type: Report from Study
  Country: US (occurrence: US)
  Receive Date: 20160707
  Receipt Date: 20160707
  Transmission Date: 20161109
  Serious: Yes (Death)
  Sender: FDA-Public Use
  Company Number: US-CONCORDIA PHARMACEUTICALS INC.-GSH201607-003468

PATIENT
  Age: 24 Year
  Sex: Male

DRUGS (4)
  1. PHENOBARBITAL HYOSCYAMINE ATROPINE SCOPOLAMINE [Suspect]
     Active Substance: ATROPINE SULFATE\HYOSCYAMINE SULFATE\PHENOBARBITAL\SCOPOLAMINE HYDROBROMIDE
     Indication: EPILEPSY
  2. CLONIDINE. [Suspect]
     Active Substance: CLONIDINE
     Indication: EPILEPSY
  3. TIAGABINE [Suspect]
     Active Substance: TIAGABINE
     Indication: EPILEPSY
  4. VALPROATE [Suspect]
     Active Substance: VALPROIC ACID
     Indication: EPILEPSY

REACTIONS (1)
  - Sudden unexplained death in epilepsy [Fatal]
